FAERS Safety Report 4984382-8 (Version None)
Quarter: 2006Q2

REPORT INFORMATION
  Report Type: 
  Country: None (occurrence: None)
  Receive Date: 20060420
  Receipt Date: 20060404
  Transmission Date: 20061013
  Serious: Yes (Disabling, Other)
  Sender: FDA-Public Use
  Company Number: US066676

PATIENT
  Age: 12 Year
  Sex: Female
  Weight: 71 kg

DRUGS (1)
  1. ENBREL [Suspect]
     Indication: JUVENILE ARTHRITIS
     Dosage: 25 MG, 2 IN 1 WEEKS, SC
     Route: 058
     Dates: start: 20031101, end: 20040101

REACTIONS (3)
  - CATARACT [None]
  - OPTIC NEURITIS [None]
  - PAPILLOEDEMA [None]
